FAERS Safety Report 8473895-2 (Version None)
Quarter: 2012Q2

REPORT INFORMATION
  Report Type: 
  Country: None (occurrence: None)
  Receive Date: 20120628
  Receipt Date: 20120312
  Transmission Date: 20120825
  Serious: Yes (Death)
  Sender: FDA-Public Use
  Company Number: US-MYLANLABS-2012S1001500

PATIENT
  Age: 41 Year
  Sex: Female
  Weight: 96.62 kg

DRUGS (8)
  1. BENZTROPINE MESYLATE [Concomitant]
  2. HALDOL [Concomitant]
  3. HYDROCHLOROTHIAZIDE [Concomitant]
  4. CLONAZEPAM [Concomitant]
  5. CLOZAPINE [Suspect]
     Indication: SCHIZOPHRENIA
  6. POTASSIUM ACETATE [Concomitant]
  7. ZOLOFT [Concomitant]
  8. PANTOPRAZOLE [Concomitant]

REACTIONS (2)
  - DEATH [None]
  - SOMNOLENCE [None]
